FAERS Safety Report 6170025-7 (Version None)
Quarter: 2009Q2

REPORT INFORMATION
  Report Type: 
  Country: None (occurrence: None)
  Receive Date: 20090424
  Receipt Date: 20081215
  Transmission Date: 20091009
  Serious: No
  Sender: FDA-Public Use
  Company Number: ALL1-2008-03561

PATIENT
  Age: 8 Year
  Sex: Male
  Weight: 26.8 kg

DRUGS (1)
  1. VYVANSE [Suspect]
     Indication: ATTENTION DEFICIT/HYPERACTIVITY DISORDER
     Dosage: 20 MG, 1X/DAY QD, ORAL
     Route: 048
     Dates: start: 20081206

REACTIONS (3)
  - AGGRESSION [None]
  - DRUG EFFECT DECREASED [None]
  - TEARFULNESS [None]
